FAERS Safety Report 24647353 (Version 7)
Quarter: 2025Q1

REPORT INFORMATION
  Report Type: Spontaneous
  Country: US (occurrence: US)
  Receive Date: 20241121
  Receipt Date: 20250124
  Transmission Date: 20250409
  Serious: No
  Sender: PFIZER
  Company Number: US-PFIZER INC-PV202400150145

PATIENT
  Age: 12 Year
  Sex: Male

DRUGS (3)
  1. GENOTROPIN [Suspect]
     Active Substance: SOMATROPIN
  2. GENOTROPIN [Suspect]
     Active Substance: SOMATROPIN
  3. GENOTROPIN [Suspect]
     Active Substance: SOMATROPIN

REACTIONS (6)
  - Drug dose omission by device [Unknown]
  - Device dispensing error [Unknown]
  - Device use issue [Unknown]
  - Device physical property issue [Unknown]
  - Incorrect dose administered by device [Unknown]
  - Drug administered in wrong device [Unknown]
